FAERS Safety Report 12802016 (Version 2)
Quarter: 2016Q4

REPORT INFORMATION
  Report Type: Spontaneous
  Country: DE (occurrence: DE)
  Receive Date: 20161003
  Receipt Date: 20161007
  Transmission Date: 20170207
  Serious: Yes (Other)
  Sender: FDA-Public Use
  Company Number: DE-IPSEN BIOPHARMACEUTICALS, INC.-2016-07840

PATIENT
  Age: 55 Year
  Sex: Female
  Weight: 66 kg

DRUGS (4)
  1. SOMATULINE AUTOGEL [Suspect]
     Active Substance: LANREOTIDE ACETATE
     Indication: NEUROENDOCRINE CARCINOMA METASTATIC
     Dosage: 120 MG
     Route: 058
     Dates: start: 20160413
  2. FORMOTEROL [Concomitant]
     Active Substance: FORMOTEROL
  3. SALBUTAMOL HUB [Concomitant]
     Dosage: 200 PUFFS
  4. LEFAX [Concomitant]
     Active Substance: DIMETHICONE

REACTIONS (12)
  - Poor quality sleep [Unknown]
  - Fatigue [Unknown]
  - Gastric polyps [Unknown]
  - Injection site nodule [Unknown]
  - Nocturia [Unknown]
  - Colitis [Unknown]
  - Large intestine polyp [Unknown]
  - Abasia [Unknown]
  - Oesophageal candidiasis [Unknown]
  - Pain in extremity [Not Recovered/Not Resolved]
  - Muscle spasms [Recovering/Resolving]
  - Diarrhoea [Recovered/Resolved]

NARRATIVE: CASE EVENT DATE: 2016
